FAERS Safety Report 4360678-8 (Version None)
Quarter: 2004Q2

REPORT INFORMATION
  Report Type: 
  Country: None (occurrence: None)
  Receive Date: 20040519
  Receipt Date: 20040519
  Transmission Date: 20050107
  Serious: Yes (Life-Threatening, Hospitalization)
  Sender: FDA-Public Use
  Company Number: None

PATIENT
  Age: 56 Year
  Sex: Male

DRUGS (1)
  1. DAPSONE [Suspect]
     Indication: PROPHYLAXIS AGAINST TRANSPLANT REJECTION
     Dosage: 100 MG PO QD
     Route: 048
     Dates: end: 20040227

REACTIONS (3)
  - HAEMOLYTIC ANAEMIA [None]
  - HEPATITIS [None]
  - HYPERSENSITIVITY [None]
